FAERS Safety Report 5155692-9 (Version None)
Quarter: 2006Q4

REPORT INFORMATION
  Report Type: 
  Country: None (occurrence: None)
  Receive Date: 20061114
  Receipt Date: 20061102
  Transmission Date: 20070319
  Serious: Yes (Death)
  Sender: FDA-Public Use
  Company Number: 2006134948

PATIENT
  Age: 56 Year
  Sex: Male

DRUGS (1)
  1. VERAPAMIL HYDROCHLORIDE INJECTION (VERAPAMIL HYDROCHLORIDE) [Suspect]
     Indication: CHEST PAIN
     Dosage: 2400 MG (TAKEN OVER 3-4 HOURS)

REACTIONS (2)
  - MEDICATION ERROR [None]
  - OVERDOSE [None]
